FAERS Safety Report 12093052 (Version 1)
Quarter: 2016Q1

REPORT INFORMATION
  Report Type: Spontaneous
  Country: US (occurrence: US)
  Receive Date: 20160219
  Receipt Date: 20160219
  Transmission Date: 20160526
  Serious: No
  Sender: FDA-Public Use
  Company Number: US-PFIZER INC-2016045422

PATIENT
  Age: 63 Year
  Sex: Male

DRUGS (21)
  1. ALLOPURINOL. [Concomitant]
     Active Substance: ALLOPURINOL
     Dosage: 100 MG, 2X/DAY
     Route: 048
  2. SINEMET [Concomitant]
     Active Substance: CARBIDOPA\LEVODOPA
     Indication: PARKINSON^S DISEASE
     Dosage: [CARBIDOPA 25 MG]/[LEVODOPA 100 MG], TWO TABLETS, 3X/DAY
     Route: 048
  3. PRISTIQ EXTENDED RELEASE [Suspect]
     Active Substance: DESVENLAFAXINE SUCCINATE
     Indication: DEPRESSION
     Dosage: 50 MG, 1X/DAY
     Route: 048
     Dates: start: 2010
  4. BABY ASPIRIN [Concomitant]
     Active Substance: ASPIRIN
     Indication: CEREBROVASCULAR ACCIDENT
     Dosage: 81 MG, 1X/DAY
     Route: 048
  5. UROCIT-K [Concomitant]
     Active Substance: POTASSIUM CITRATE
     Dosage: 15 MG, 2X/DAY
     Route: 048
  6. FLOMAX [Concomitant]
     Active Substance: TAMSULOSIN HYDROCHLORIDE
     Dosage: 0.4 MG, 2X/DAY
     Route: 048
  7. CARVEDILOL. [Concomitant]
     Active Substance: CARVEDILOL
     Indication: BLOOD PRESSURE ABNORMAL
     Dosage: 3.125 MG, 2X/DAY
     Route: 048
  8. MECLIZINE [Concomitant]
     Active Substance: MECLIZINE HYDROCHLORIDE
     Indication: DIZZINESS
     Dosage: 25 MG, 3X/DAY, AS NEEDED
     Route: 048
  9. LORATADINE. [Concomitant]
     Active Substance: LORATADINE
     Indication: SEASONAL ALLERGY
     Dosage: 10 MG, 1X/DAY
     Route: 048
  10. VITAMIN B12 [Suspect]
     Active Substance: CYANOCOBALAMIN
     Dosage: ^2500^, AS NEEDED
  11. FLONASE [Concomitant]
     Active Substance: FLUTICASONE PROPIONATE
     Dosage: 1 DF, 2X/DAY (50 MCG/INH)
     Route: 045
  12. FLUTICASONE [Concomitant]
     Active Substance: FLUTICASONE\FLUTICASONE PROPIONATE
     Dosage: 50 UG, UNK
     Route: 045
  13. UROCIT-K [Concomitant]
     Active Substance: POTASSIUM CITRATE
     Indication: NEPHROLITHIASIS
     Dosage: 15 MEQ, 2X/DAY
     Route: 048
  14. ALLOPURINOL. [Concomitant]
     Active Substance: ALLOPURINOL
     Indication: GOUT
     Dosage: 100 MG, DAILY
     Route: 048
  15. AZILECT [Concomitant]
     Active Substance: RASAGILINE MESYLATE
     Indication: PARKINSON^S DISEASE
     Dosage: 1 MG, DAILY
     Route: 048
  16. COLCHICINE. [Concomitant]
     Active Substance: COLCHICINE
     Indication: GOUT
     Dosage: 0.6 MG, AS NEEDED (AT BEDTIME)
     Route: 048
  17. PRISTIQ EXTENDED RELEASE [Suspect]
     Active Substance: DESVENLAFAXINE SUCCINATE
     Dosage: 50 MG, 1X/DAY
     Route: 048
  18. LYRICA [Suspect]
     Active Substance: PREGABALIN
     Dosage: 75 MG, 3X/DAY
     Route: 048
  19. CARVEDILOL. [Concomitant]
     Active Substance: CARVEDILOL
     Dosage: 3.125 MG, 1X/DAY
     Route: 048
  20. OMEPRAZOLE. [Concomitant]
     Active Substance: OMEPRAZOLE
     Indication: ULCER
     Dosage: 20 MG, 1X/DAY
     Route: 048
  21. KLONOPIN [Concomitant]
     Active Substance: CLONAZEPAM
     Indication: STRESS
     Dosage: 0.5 MG, 2X/DAY
     Route: 048

REACTIONS (6)
  - Dental caries [Not Recovered/Not Resolved]
  - Expired product administered [Not Recovered/Not Resolved]
  - Sleep disorder [Not Recovered/Not Resolved]
  - Muscle spasms [Not Recovered/Not Resolved]
  - Carpal tunnel syndrome [Unknown]
  - Intentional product misuse [Not Recovered/Not Resolved]
